FAERS Safety Report 8479473-3 (Version None)
Quarter: 2012Q2

REPORT INFORMATION
  Report Type: 
  Country: None (occurrence: None)
  Receive Date: 20120629
  Receipt Date: 20120620
  Transmission Date: 20120825
  Serious: Yes (Hospitalization, Other)
  Sender: FDA-Public Use
  Company Number: US-PFIZER INC-2010061371

PATIENT
  Sex: Male
  Weight: 20.41 kg

DRUGS (9)
  1. AMOXICILLIN [Suspect]
     Indication: UPPER RESPIRATORY TRACT INFECTION
  2. CHILDREN'S TYLENOL SUSPENSION [Suspect]
     Dosage: UNK
     Route: 048
  3. CHILDREN'S BENADRYL ALLERGY [Suspect]
     Indication: PRODUCT USED FOR UNKNOWN INDICATION
     Dosage: UNK
     Route: 048
  4. CHILDREN'S TYLENOL SUSPENSION [Suspect]
     Indication: EAR INFECTION
     Dosage: 1 1/2 TEASPOON, EVERY 4 HOURS
     Route: 048
     Dates: start: 20100418, end: 20100419
  5. ZYRTEC [Suspect]
     Dosage: UNK
  6. CHILDREN'S MOTRIN [Suspect]
     Indication: EAR INFECTION
     Dosage: UNK
     Route: 048
  7. CETIRIZINE [Concomitant]
     Dosage: UNK
  8. CHILDREN'S MOTRIN [Suspect]
     Dosage: UNK
     Route: 048
  9. AMOXICILLIN [Suspect]
     Indication: OTITIS MEDIA
     Route: 065

REACTIONS (8)
  - PETECHIAE [None]
  - LIP SWELLING [None]
  - PAIN IN EXTREMITY [None]
  - ERYTHEMA MULTIFORME [None]
  - EAR INFECTION [None]
  - PRODUCT QUALITY ISSUE [None]
  - VOMITING [None]
  - EYE SWELLING [None]
